FAERS Safety Report 4839906-8 (Version None)
Quarter: 2005Q4

REPORT INFORMATION
  Report Type: 
  Country: None (occurrence: None)
  Receive Date: 20051129
  Receipt Date: 20051028
  Transmission Date: 20060501
  Serious: Yes (Hospitalization)
  Sender: FDA-Public Use
  Company Number: JP-ROCHE-422820

PATIENT
  Age: 69 Year
  Sex: Female

DRUGS (9)
  1. PANALDINE [Suspect]
     Indication: AORTIC VALVE REPLACEMENT
     Route: 048
     Dates: end: 20031128
  2. PANALDINE [Suspect]
     Route: 048
  3. WARFARIN SODIUM [Concomitant]
     Indication: AORTIC VALVE REPLACEMENT
     Route: 048
  4. PURSENNID [Concomitant]
     Indication: CONSTIPATION
     Route: 048
     Dates: start: 20030123
  5. RENIVACE [Concomitant]
     Indication: AORTIC VALVE REPLACEMENT
     Route: 048
     Dates: end: 20031204
  6. LASIX [Concomitant]
     Indication: AORTIC VALVE REPLACEMENT
     Route: 048
  7. ALDACTONE [Concomitant]
     Indication: AORTIC VALVE REPLACEMENT
     Route: 048
  8. PENFILL N [Concomitant]
     Indication: DIABETES MELLITUS
     Dosage: 5U IN THE MORNING, 2U IN THE EVENING.
     Route: 058
  9. CARVEDILOL [Concomitant]

REACTIONS (4)
  - ABDOMINAL PAIN [None]
  - HELICOBACTER INFECTION [None]
  - HENOCH-SCHONLEIN PURPURA [None]
  - MELAENA [None]
